FAERS Safety Report 5753979-X (Version None)
Quarter: 2008Q2

REPORT INFORMATION
  Report Type: 
  Country: None (occurrence: None)
  Receive Date: 20080530
  Receipt Date: 20080527
  Transmission Date: 20081010
  Serious: Yes (Other)
  Sender: FDA-Public Use
  Company Number: FR-JNJFOC-20080505369

PATIENT
  Sex: Female

DRUGS (5)
  1. EPITOMAX [Suspect]
     Route: 048
  2. EPITOMAX [Suspect]
     Dosage: 100-0-125
     Route: 048
  3. EPITOMAX [Suspect]
     Indication: EPILEPSY
     Route: 048
  4. NEURONTIN [Suspect]
     Indication: EPILEPSY
     Route: 048
  5. FOLIC ACID [Suspect]
     Indication: DRUG USE FOR UNKNOWN INDICATION
     Route: 065

REACTIONS (3)
  - DRUG EXPOSURE DURING PREGNANCY [None]
  - EPILEPSY [None]
  - INTRA-UTERINE DEATH [None]
